FAERS Safety Report 6523171-X (Version None)
Quarter: 2009Q4

REPORT INFORMATION
  Report Type: 
  Country: None (occurrence: None)
  Receive Date: 20091222
  Receipt Date: 20091211
  Transmission Date: 20100525
  Serious: Yes (Death)
  Sender: FDA-Public Use
  Company Number: URSO-2009-151

PATIENT
  Age: 49 Year
  Sex: Female

DRUGS (13)
  1. URSODIOL [Suspect]
     Indication: HEPATITIS C
     Dosage: 600 MG ORAL
     Route: 048
     Dates: start: 20071031, end: 20080408
  2. URSODIOL [Suspect]
     Indication: LIVER DISORDER
     Dosage: 600 MG ORAL
     Route: 048
     Dates: start: 20071031, end: 20080408
  3. RIVOTRIL (CLONAZEPAM) [Suspect]
     Dosage: 1 MG ORAL ; 1.5 MG ORAL
     Route: 048
     Dates: start: 20071030, end: 20071112
  4. RIVOTRIL (CLONAZEPAM) [Suspect]
     Dosage: 1 MG ORAL ; 1.5 MG ORAL
     Route: 048
     Dates: start: 20071113, end: 20080208
  5. PAXIL [Suspect]
     Dosage: 10 MG ORAL
     Route: 048
     Dates: start: 20071030, end: 20080208
  6. DESYREL [Suspect]
     Dosage: 50 MG ORAL
     Route: 048
     Dates: start: 20071030, end: 20080208
  7. AMOBAN (ZOPICLONE) [Suspect]
     Dosage: 7.5 MG ORAL
     Route: 048
     Dates: start: 20071030, end: 20080208
  8. LASIX [Concomitant]
  9. ALDACTONE [Concomitant]
  10. LANSOPRAZOLE [Concomitant]
  11. NEO-MINOPHAGEN C (GLYCYRRHIZIN, GLYCINE, CYSTEINE COMBINED DRUG) [Concomitant]
  12. CLARITIN [Concomitant]
  13. SOLDACTONE (POTASSIUM CANRENOATE) [Concomitant]

REACTIONS (2)
  - HEPATIC FAILURE [None]
  - PULMONARY HYPERTENSION [None]
